FAERS Safety Report 13549978 (Version 1)
Quarter: 2017Q2

REPORT INFORMATION
  Report Type: Spontaneous
  Country: CA (occurrence: CA)
  Receive Date: 20170516
  Receipt Date: 20170516
  Transmission Date: 20170830
  Serious: Yes (Hospitalization, Other)
  Sender: FDA-Public Use
  Company Number: CA-GLAXOSMITHKLINE-CA2017GSK069222

PATIENT
  Age: 68 Year
  Sex: Female
  Weight: 33 kg

DRUGS (1)
  1. AVANDIA [Suspect]
     Active Substance: ROSIGLITAZONE MALEATE
     Indication: TYPE 2 DIABETES MELLITUS
     Dosage: 4 MG, 1D
     Route: 048

REACTIONS (6)
  - Ejection fraction abnormal [Recovered/Resolved]
  - Aspartate aminotransferase abnormal [Recovered/Resolved]
  - Cardiomyopathy [Recovered/Resolved]
  - Hepatic failure [Recovered/Resolved]
  - Ammonia abnormal [Recovered/Resolved]
  - Liver function test increased [Recovered/Resolved]
